FAERS Safety Report 10011887 (Version 1)
Quarter: 2014Q1

REPORT INFORMATION
  Report Type: Spontaneous
  Country: JP (occurrence: JP)
  Receive Date: 20140314
  Receipt Date: 20140314
  Transmission Date: 20141002
  Serious: Yes (Hospitalization)
  Sender: FDA-Public Use
  Company Number: JP-009507513-1403JPN007038

PATIENT
  Age: 69 Year
  Sex: Female

DRUGS (5)
  1. GLACTIV [Suspect]
     Indication: TYPE 2 DIABETES MELLITUS
     Dosage: 50 MG, DAILY
     Route: 048
     Dates: end: 201202
  2. GLACTIV [Suspect]
     Dosage: UNK
     Route: 048
     Dates: start: 2012
  3. INSULIN DETEMIR [Suspect]
     Indication: TYPE 2 DIABETES MELLITUS
     Dosage: UNK
     Route: 058
     Dates: start: 200803, end: 201202
  4. INSULIN DETEMIR [Suspect]
     Dosage: UNK
     Route: 058
     Dates: start: 20120309, end: 2012
  5. ATORVASTATIN [Concomitant]

REACTIONS (2)
  - Enterocolitis [Recovered/Resolved]
  - Liver disorder [Recovered/Resolved]
